FAERS Safety Report 4869661-7 (Version None)
Quarter: 2005Q4

REPORT INFORMATION
  Report Type: 
  Country: None (occurrence: None)
  Receive Date: 20051223
  Receipt Date: 20051219
  Transmission Date: 20060501
  Serious: Yes (Life-Threatening, Hospitalization)
  Sender: FDA-Public Use
  Company Number: BEWYE248520DEC05

PATIENT
  Age: 69 Year
  Sex: Male

DRUGS (10)
  1. RAPAMUNE [Suspect]
     Indication: PROPHYLAXIS AGAINST TRANSPLANT REJECTION
     Dosage: 5 MG / DAY
     Route: 048
     Dates: start: 20050910
  2. ZENAPAX [Concomitant]
  3. ZOVIRAX [Concomitant]
  4. MEDROL [Concomitant]
  5. CELLCEPT [Concomitant]
  6. BACTRIM DS [Concomitant]
  7. AMLODIPINE BESYLATE [Concomitant]
  8. RYDENE (NICARDIPINE HYDROCHLORIDE) [Concomitant]
  9. TENORMIN [Concomitant]
  10. MOLSIDOMINE (MOLSIDOMINE) [Concomitant]

REACTIONS (8)
  - COMPLICATIONS OF TRANSPLANTED KIDNEY [None]
  - CONDITION AGGRAVATED [None]
  - DIALYSIS [None]
  - HYPERTENSION [None]
  - PNEUMONIA [None]
  - PULMONARY HYPERTENSION [None]
  - PULMONARY OEDEMA [None]
  - RENAL TUBULAR NECROSIS [None]
